FAERS Safety Report 6491647-X (Version None)
Quarter: 2009Q4

REPORT INFORMATION
  Report Type: 
  Country: None (occurrence: None)
  Receive Date: 20091207
  Receipt Date: 20091203
  Transmission Date: 20100525
  Serious: Yes (Hospitalization)
  Sender: FDA-Public Use
  Company Number: 2009SP038516

PATIENT
  Age: 62 Year
  Sex: Male
  Weight: 61 kg

DRUGS (6)
  1. PEG-INTRON [Suspect]
     Indication: HEPATITIS C
     Dosage: 100 MCG; QW; SC
     Route: 058
     Dates: start: 20090114, end: 20091126
  2. RIBAVIRIN [Suspect]
     Indication: HEPATITIS C
     Dosage: 800 MG; QD; PO 600 MG; QD; PO
     Route: 048
     Dates: start: 20090114, end: 20090325
  3. RIBAVIRIN [Suspect]
     Indication: HEPATITIS C
     Dosage: 800 MG; QD; PO 600 MG; QD; PO
     Route: 048
     Dates: start: 20090326, end: 20091128
  4. URSO 250 [Concomitant]
  5. DIOVAN [Concomitant]
  6. ZETIA [Concomitant]

REACTIONS (4)
  - ABDOMINAL PAIN [None]
  - CHOLECYSTITIS [None]
  - CHOLELITHIASIS [None]
  - VOMITING [None]
